FAERS Safety Report 12681370 (Version 3)
Quarter: 2016Q4

REPORT INFORMATION
  Report Type: Spontaneous
  Country: US (occurrence: US)
  Receive Date: 20160824
  Receipt Date: 20161103
  Transmission Date: 20170207
  Serious: Yes (Hospitalization)
  Sender: FDA-Public Use
  Company Number: US-BAUSCH-BL-2016-020058

PATIENT
  Sex: Female

DRUGS (1)
  1. XIFAXAN [Suspect]
     Active Substance: RIFAXIMIN
     Indication: HEPATIC CIRRHOSIS
     Route: 065

REACTIONS (5)
  - Malaise [Unknown]
  - Liver disorder [Unknown]
  - Dyspnoea [Unknown]
  - Fluid overload [Unknown]
  - Ascites [Unknown]

NARRATIVE: CASE EVENT DATE: 2016
